FAERS Safety Report 23422009 (Version 1)
Quarter: 2024Q1

REPORT INFORMATION
  Report Type: Spontaneous
  Country: RU (occurrence: RU)
  Receive Date: 20240119
  Receipt Date: 20240119
  Transmission Date: 20240410
  Serious: Yes (Life-Threatening)
  Sender: FDA-Public Use
  Company Number: None

PATIENT
  Age: 64 Year
  Sex: Male
  Weight: 100 kg

DRUGS (2)
  1. ULTRAVIST [Suspect]
     Active Substance: IOPROMIDE
     Indication: Angiocardiogram
     Dosage: 200 ML, ONCE
     Route: 013
     Dates: start: 20240109, end: 20240109
  2. LIDOCAINE [Suspect]
     Active Substance: LIDOCAINE
     Indication: Angiocardiogram
     Dosage: 1%-4 ML
     Route: 023
     Dates: start: 20240109, end: 20240109

REACTIONS (3)
  - Asthenia [Recovering/Resolving]
  - Dizziness [Recovering/Resolving]
  - Blood pressure decreased [Recovering/Resolving]

NARRATIVE: CASE EVENT DATE: 20240109
